FAERS Safety Report 14338114 (Version 2)
Quarter: 2018Q1

REPORT INFORMATION
  Report Type: Spontaneous
  Country: DE (occurrence: DE)
  Receive Date: 20171229
  Receipt Date: 20180103
  Transmission Date: 20180509
  Serious: Yes (Life-Threatening, Other)
  Sender: FDA-Public Use
  Company Number: DE-LEO PHARMA-306757

PATIENT
  Sex: Male

DRUGS (3)
  1. DAIVOBET [Suspect]
     Active Substance: BETAMETHASONE DIPROPIONATE\CALCIPOTRIENE
     Indication: PRODUCT USED FOR UNKNOWN INDICATION
  2. MTX [Concomitant]
     Active Substance: METHOTREXATE SODIUM
     Indication: PRODUCT USED FOR UNKNOWN INDICATION
  3. FOLIC ACID. [Concomitant]
     Active Substance: FOLIC ACID
     Indication: PRODUCT USED FOR UNKNOWN INDICATION

REACTIONS (7)
  - Cartilage injury [Not Recovered/Not Resolved]
  - Drug ineffective [Unknown]
  - Prostate cancer [Unknown]
  - Swelling [Not Recovered/Not Resolved]
  - Joint stiffness [Not Recovered/Not Resolved]
  - Immobile [Not Recovered/Not Resolved]
  - Psoriasis [Not Recovered/Not Resolved]
